FAERS Safety Report 21406441 (Version 2)
Quarter: 2022Q4

REPORT INFORMATION
  Report Type: Report from Study
  Country: JP (occurrence: JP)
  Receive Date: 20221004
  Receipt Date: 20221006
  Transmission Date: 20230112
  Serious: Yes (Hospitalization)
  Sender: FDA-Public Use
  Company Number: JP-CHUGAI-2022027504

PATIENT
  Age: 59 Year
  Sex: Female
  Weight: 54.5 kg

DRUGS (37)
  1. ATEZOLIZUMAB [Suspect]
     Active Substance: ATEZOLIZUMAB
     Indication: Hormone receptor positive breast cancer
     Dosage: 840 MILLIGRAM, DAY1, 15
     Route: 042
     Dates: start: 20220215, end: 20220614
  2. ATEZOLIZUMAB [Suspect]
     Active Substance: ATEZOLIZUMAB
     Indication: HER2 negative breast cancer
  3. BEVACIZUMAB [Suspect]
     Active Substance: BEVACIZUMAB
     Indication: Breast cancer
     Route: 042
     Dates: start: 20220215, end: 20220614
  4. BEVACIZUMAB [Suspect]
     Active Substance: BEVACIZUMAB
     Route: 042
     Dates: start: 20220907
  5. PACLITAXEL [Concomitant]
     Active Substance: PACLITAXEL
     Indication: Hormone receptor positive breast cancer
     Dosage: 90 MILLIGRAM/SQ. METER, DAY1, 8, 15
     Route: 042
     Dates: start: 20220215, end: 20220621
  6. PACLITAXEL [Concomitant]
     Active Substance: PACLITAXEL
     Indication: HER2 negative breast cancer
  7. TEPRENONE [Concomitant]
     Active Substance: TEPRENONE
     Indication: Gastritis
     Dosage: 5 MILLIGRAM, PRN
     Route: 048
  8. BUTROPIUM BROMIDE [Concomitant]
     Active Substance: BUTROPIUM BROMIDE
     Indication: Gastritis
     Dosage: 10 MILLIGRAM, PRN
     Route: 048
  9. SODIUM GUALENATE [Concomitant]
     Active Substance: SODIUM GUALENATE
     Indication: Stomatitis
     Dosage: UNK, PRN
  10. HEPARINOID [Concomitant]
     Indication: Dry skin prophylaxis
     Dosage: UNK, PRN
     Route: 061
  11. BIFONAZOLE [Concomitant]
     Active Substance: BIFONAZOLE
     Indication: Tinea infection
     Dosage: UNK, PRN
     Route: 061
  12. SP [DEQUALINIUM CHLORIDE] [Concomitant]
     Indication: Stomatitis
     Dosage: 25 MILLIGRAM, PRN
     Route: 048
  13. ONGLYZA [Concomitant]
     Active Substance: SAXAGLIPTIN HYDROCHLORIDE
     Indication: Diabetes mellitus
     Dosage: 5 MILLIGRAM, QD
     Route: 048
  14. FAMOTIDINE [Concomitant]
     Active Substance: FAMOTIDINE
     Indication: Gastritis
     Dosage: 10 MILLIGRAM, PRN
     Route: 048
  15. ROSUVASTATIN [Concomitant]
     Active Substance: ROSUVASTATIN
     Indication: Hyperlipidaemia
     Dosage: 2.5 MILLIGRAM, QD
     Route: 048
  16. KETOPROFEN [Concomitant]
     Active Substance: KETOPROFEN
     Indication: Cancer pain
     Dosage: 1 UNK, PRN
     Route: 062
  17. MAGNESIUM OXIDE [Concomitant]
     Active Substance: MAGNESIUM OXIDE
     Indication: Constipation
     Dosage: 750 MILLIGRAM, PRN
     Route: 048
  18. DEXAMETHASONE SODIUM PHOSPHATE [Concomitant]
     Active Substance: DEXAMETHASONE SODIUM PHOSPHATE
     Indication: Premedication
     Dosage: 6.6 MILLIGRAM
     Route: 042
     Dates: start: 20220215
  19. GASTER [Concomitant]
     Active Substance: FAMOTIDINE
     Indication: Premedication
     Dosage: 20 MILLIGRAM
     Route: 042
     Dates: start: 20220215
  20. DIPHENHYDRAMINE [Concomitant]
     Active Substance: DIPHENHYDRAMINE
     Indication: Premedication
     Dosage: 5 DOSAGE FORM
     Route: 048
  21. BROTIZOLAM [Concomitant]
     Active Substance: BROTIZOLAM
     Indication: Insomnia
     Dosage: 0.25 MILLIGRAM, PRN
     Route: 048
  22. TRAMADOL [Concomitant]
     Active Substance: TRAMADOL
     Indication: Myalgia
     Dosage: 25 MILLIGRAM, PRN
     Route: 048
  23. LOXOPROFEN SODIUM [Concomitant]
     Active Substance: LOXOPROFEN SODIUM
     Indication: Myalgia
     Dosage: 1 UNK, PRN
     Route: 062
     Dates: start: 20220227
  24. VOLTAREN [Concomitant]
     Active Substance: DICLOFENAC SODIUM
     Indication: Migraine
     Dosage: 50 MILLIGRAM, PRN
     Route: 054
     Dates: start: 20220426
  25. RINDERON V [Concomitant]
     Active Substance: BETAMETHASONE VALERATE
     Indication: Eczema
     Dosage: UNK, PRN
     Route: 061
     Dates: start: 20220517
  26. LOPERAMIDE [Concomitant]
     Active Substance: LOPERAMIDE
     Indication: Diarrhoea
     Dosage: 1 MILLIGRAM, PRN
     Route: 048
     Dates: start: 20220529
  27. IPRAGLIFLOZIN L-PROLINE [Concomitant]
     Active Substance: IPRAGLIFLOZIN L-PROLINE
     Indication: Diabetes mellitus
     Dosage: 50 MILLIGRAM, QD
     Route: 048
     Dates: start: 20220529
  28. GLYCOSAMINOGLYCANS [Concomitant]
     Active Substance: GLYCOSAMINOGLYCANS
     Indication: Dry skin prophylaxis
     Dosage: UNK, PRN
     Route: 061
     Dates: start: 20220529
  29. FLAVIN ADENINE DINUCLEOTIDE [Concomitant]
     Active Substance: FLAVIN ADENINE DINUCLEOTIDE
     Indication: Stomatitis
     Dosage: 5 MILLIGRAM, TID
     Route: 048
  30. OMEGA-3-ACID ETHYL ESTERS [Concomitant]
     Active Substance: OMEGA-3-ACID ETHYL ESTERS
     Indication: Hyperlipidaemia
     Dosage: 2 GRAM, QD
     Route: 048
  31. SOLIFENACIN SUCCINATE [Concomitant]
     Active Substance: SOLIFENACIN SUCCINATE
     Indication: Neurogenic bladder
     Dosage: 5 MILLIGRAM, QD
     Route: 048
  32. VITANEURIN [Concomitant]
     Indication: Stomatitis
     Dosage: 1 DOSAGE FORM, TID
     Route: 048
  33. METOCLOPRAMIDE [Concomitant]
     Active Substance: METOCLOPRAMIDE
     Indication: Nausea
     Dosage: 5 MILLIGRAM, PRN
     Route: 048
  34. LOXOPROFEN [Concomitant]
     Active Substance: LOXOPROFEN
     Indication: Cancer pain
     Dosage: 60 MILLIGRAM, PRN
     Route: 048
  35. LOXOPROFEN [Concomitant]
     Active Substance: LOXOPROFEN
     Indication: Myalgia
  36. REBAMIPIDE [Concomitant]
     Active Substance: REBAMIPIDE
     Indication: Gastritis
     Dosage: 100 MILLIGRAM, PRN
     Route: 048
  37. CLOTIAZEPAM [Concomitant]
     Active Substance: CLOTIAZEPAM
     Indication: Depression
     Dosage: 5 MILLIGRAM, PRN
     Route: 048

REACTIONS (3)
  - Heat illness [Recovered/Resolved]
  - Adrenal insufficiency [Recovering/Resolving]
  - Cholangitis [Recovering/Resolving]

NARRATIVE: CASE EVENT DATE: 20220709
